FAERS Safety Report 10365162 (Version 1)
Quarter: 2014Q1

REPORT INFORMATION
  Report Type: Spontaneous
  Country: US (occurrence: None)
  Receive Date: 20140306
  Receipt Date: 20140306
  Transmission Date: 20141002
  Serious: Yes (Other)
  Sender: FDA-Public Use
  Company Number: 163-21880-13091730

PATIENT
  Age: 75 Year
  Sex: Male
  Weight: 82.33 kg

DRUGS (8)
  1. REVLIMID (LENALIDOMIDE)(25 MILLIGRAM, CAPSULES) [Suspect]
     Indication: PLASMA CELL MYELOMA
     Dosage: 21 IN 21 D
     Route: 048
     Dates: start: 20121129
  2. CHLORCON(POTASSIUM CHLORIDE)(UNKNOWN) [Concomitant]
  3. OXYCODONE(OXYCODONE)(UNKNOWN) [Concomitant]
  4. ZOMETA(ZOLEDRONIC ACID)(UNKNOWN) [Concomitant]
  5. CALCIUM(CALCIUM)(UNKNOWN) [Concomitant]
  6. CLOPIDOGREL BISULFATE(CLOPIDOGREL SULFATE)(UNKNOWN) [Concomitant]
  7. GLIPIZIDE(GLIPIZIDE)(UNKNOWN) [Concomitant]
  8. LORAZEPAM(LORAZEPAM)(UNKNOWN) [Concomitant]

REACTIONS (1)
  - Pancytopenia [None]
